FAERS Safety Report 26168164 (Version 1)
Quarter: 2025Q4

REPORT INFORMATION
  Report Type: Spontaneous
  Country: US (occurrence: US)
  Receive Date: 20251217
  Receipt Date: 20251217
  Transmission Date: 20260117
  Serious: No
  Sender: SUNOVION
  Company Number: US-SMPA-2025SPA015908

PATIENT
  Age: 80 Year
  Sex: Female
  Weight: 75.8 kg

DRUGS (1)
  1. GEMTESA [Suspect]
     Active Substance: VIBEGRON
     Indication: Urinary incontinence
     Dosage: 75 MG, QD
     Route: 048
     Dates: start: 2025, end: 20251117

REACTIONS (2)
  - Dizziness [Unknown]
  - Disorientation [Unknown]

NARRATIVE: CASE EVENT DATE: 20250101
